FAERS Safety Report 10070787 (Version 1)
Quarter: 2014Q2

REPORT INFORMATION
  Report Type: Spontaneous
  Country: US (occurrence: US)
  Receive Date: 20140410
  Receipt Date: 20140410
  Transmission Date: 20141212
  Serious: No
  Sender: FDA-Public Use
  Company Number: US-TARO-2013P1005231

PATIENT
  Age: 46 Year
  Sex: Female
  Weight: 54.43 kg

DRUGS (4)
  1. ETODOLAC TABLETS 500 MG [Suspect]
     Indication: ARTHRITIS
     Route: 048
     Dates: start: 201302, end: 20130424
  2. RITALIN [Concomitant]
     Indication: NARCOLEPSY
  3. SOLODYN [Concomitant]
     Indication: ROSACEA
  4. CYCLOBENZAPRINE [Concomitant]
     Indication: ARTHRITIS

REACTIONS (3)
  - Chromaturia [Recovered/Resolved]
  - Protein urine present [Unknown]
  - Bilirubin urine [Unknown]
